FAERS Safety Report 6177634-X (Version None)
Quarter: 2009Q2

REPORT INFORMATION
  Report Type: 
  Country: None (occurrence: None)
  Receive Date: 20090501
  Receipt Date: 20090501
  Transmission Date: 20091009
  Serious: No
  Sender: FDA-Public Use
  Company Number: None

PATIENT
  Age: 46 Year
  Sex: Female
  Weight: 77 kg

DRUGS (5)
  1. WARFARIN SODIUM [Suspect]
     Indication: DEEP VEIN THROMBOSIS
     Dosage: 5MG -} 3MG PO QD
     Route: 048
     Dates: start: 20090304, end: 20090308
  2. METRONIDAZOLE [Concomitant]
  3. CEFEPIME [Concomitant]
  4. RANITIDINE [Concomitant]
  5. MORPHINE [Concomitant]

REACTIONS (7)
  - ARTHRALGIA [None]
  - CLOSTRIDIAL INFECTION [None]
  - HAEMATOMA [None]
  - INTERNATIONAL NORMALISED RATIO INCREASED [None]
  - PAIN IN EXTREMITY [None]
  - SWELLING [None]
  - WHITE BLOOD CELL COUNT INCREASED [None]
